FAERS Safety Report 23836796 (Version 2)
Quarter: 2024Q2

REPORT INFORMATION
  Report Type: Spontaneous
  Country: US (occurrence: US)
  Receive Date: 20240509
  Receipt Date: 20240603
  Transmission Date: 20240716
  Serious: Yes (Other)
  Sender: FDA-Public Use
  Company Number: US-BRISTOL-MYERS SQUIBB COMPANY-2024-070092

PATIENT
  Age: 63 Year
  Sex: Female
  Weight: 50.8 kg

DRUGS (1)
  1. REVLIMID [Suspect]
     Active Substance: LENALIDOMIDE
     Indication: Brain neoplasm
     Dosage: DAILY FOR 21 DAYS
     Route: 048

REACTIONS (9)
  - Neuropathy peripheral [Unknown]
  - Erythema [Unknown]
  - Decreased appetite [Unknown]
  - Heart rate increased [Unknown]
  - Product dose omission issue [Unknown]
  - Off label use [Unknown]
  - Headache [Unknown]
  - Depression [Unknown]
  - Anxiety [Unknown]
